FAERS Safety Report 22222315 (Version 2)
Quarter: 2023Q2

REPORT INFORMATION
  Report Type: Spontaneous
  Country: JP (occurrence: JP)
  Receive Date: 20230418
  Receipt Date: 20230628
  Transmission Date: 20230722
  Serious: Yes (Hospitalization)
  Sender: FDA-Public Use
  Company Number: JP-MSD-M2023-14906

PATIENT
  Age: 82 Year
  Sex: Male

DRUGS (2)
  1. KEYTRUDA [Suspect]
     Active Substance: PEMBROLIZUMAB
     Indication: Hypopharyngeal cancer stage IV
     Dosage: 200 MILLIGRAM, Q3W
     Route: 041
     Dates: end: 20230208
  2. LEVOTHYROXINE [Concomitant]
     Active Substance: LEVOTHYROXINE
     Indication: Diabetes mellitus
     Dosage: UNK
     Route: 048

REACTIONS (1)
  - Pleural effusion [Recovered/Resolved]

NARRATIVE: CASE EVENT DATE: 20230101
